FAERS Safety Report 19518337 (Version 1)
Quarter: 2021Q3

REPORT INFORMATION
  Report Type: Spontaneous
  Country: US (occurrence: US)
  Receive Date: 20210709
  Receipt Date: 20210709
  Transmission Date: 20211014
  Serious: No
  Sender: FDA-Public Use
  Company Number: None

PATIENT
  Sex: Female

DRUGS (11)
  1. LEVALBUTEROL TARTRATE HFA [Concomitant]
     Active Substance: LEVALBUTEROL TARTRATE
  2. LETAIRIS [Suspect]
     Active Substance: AMBRISENTAN
     Indication: PULMONARY ARTERIAL HYPERTENSION
     Route: 048
  3. TRACLEER [Concomitant]
     Active Substance: BOSENTAN
  4. DIGOXIN. [Concomitant]
     Active Substance: DIGOXIN
  5. CETIRIZINE HCL CHILDRENS [Concomitant]
  6. CAROSPIR [Concomitant]
     Active Substance: SPIRONOLACTONE
  7. TADALAFIL. [Concomitant]
     Active Substance: TADALAFIL
  8. BUDESONIDE. [Concomitant]
     Active Substance: BUDESONIDE
  9. EPANED [Concomitant]
     Active Substance: ENALAPRIL MALEATE
  10. METOCLOPRAMIDE HCL [Concomitant]
     Active Substance: METOCLOPRAMIDE HYDROCHLORIDE
  11. FUROSEMIDE. [Concomitant]
     Active Substance: FUROSEMIDE

REACTIONS (1)
  - Off label use [None]
